FAERS Safety Report 7381446-9 (Version None)
Quarter: 2011Q1

REPORT INFORMATION
  Report Type: 
  Country: None (occurrence: None)
  Receive Date: 20110329
  Receipt Date: 20110323
  Transmission Date: 20110831
  Serious: Yes (Hospitalization)
  Sender: FDA-Public Use
  Company Number: FR-PFIZER INC-2011063889

PATIENT
  Age: 19 Year
  Sex: Male

DRUGS (12)
  1. ROCEPHIN [Concomitant]
     Dosage: UNK
     Dates: start: 20110220, end: 20110223
  2. GENTALLINE [Concomitant]
     Dosage: UNK
     Dates: start: 20110220, end: 20110225
  3. INSULIN [Concomitant]
     Dosage: UNK
     Dates: start: 20110225, end: 20110227
  4. HYDROCORTISONE HEMISUCCINATE [Concomitant]
     Dosage: UNK
     Dates: start: 20110225
  5. TAZOCILLINE [Suspect]
     Dosage: UNK
     Route: 042
     Dates: start: 20110223, end: 20110301
  6. PRIMPERAN TAB [Concomitant]
     Dosage: UNK
     Dates: start: 20110222, end: 20110227
  7. RIVOTRIL [Concomitant]
     Dosage: UNK
     Dates: start: 20110226, end: 20110301
  8. LOVENOX [Suspect]
     Dosage: UNK
     Route: 058
     Dates: start: 20110217, end: 20110228
  9. GARDENAL ^AVENTIS^ [Concomitant]
     Dosage: UNK
     Dates: start: 20110224, end: 20110302
  10. ZYVOX [Suspect]
     Dosage: UNK
     Route: 042
     Dates: start: 20110224, end: 20110301
  11. DUPHALAC [Concomitant]
     Dosage: UNK
     Dates: start: 20110225, end: 20110228
  12. PENTOTHAL [Concomitant]
     Dosage: UNK
     Dates: start: 20110220, end: 20110222

REACTIONS (3)
  - THROMBOCYTOPENIA [None]
  - HAEMORRHAGIC DIATHESIS [None]
  - ANAEMIA [None]
